FAERS Safety Report 5698799-X (Version None)
Quarter: 2008Q2

REPORT INFORMATION
  Report Type: 
  Country: None (occurrence: None)
  Receive Date: 20080404
  Receipt Date: 20080327
  Transmission Date: 20081010
  Serious: Yes (Other)
  Sender: FDA-Public Use
  Company Number: 18835

PATIENT

DRUGS (4)
  1. VINCRISTINE [Suspect]
     Indication: HODGKIN'S DISEASE
  2. BLEOMYCIN SULFATE [Suspect]
     Indication: HODGKIN'S DISEASE
  3. DOXORUBICIN HCL [Suspect]
     Indication: HODGKIN'S DISEASE
  4. NEUPOGEN [Suspect]
     Indication: NEUTROPENIA

REACTIONS (2)
  - SEPSIS [None]
  - STEM CELL TRANSPLANT [None]
